FAERS Safety Report 9693103 (Version 3)
Quarter: 2014Q1

REPORT INFORMATION
  Report Type: Report from Study
  Country: DE (occurrence: DE)
  Receive Date: 20131118
  Receipt Date: 20140207
  Transmission Date: 20141002
  Serious: Yes (Hospitalization)
  Sender: FDA-Public Use
  Company Number: DE-ELI_LILLY_AND_COMPANY-DE201311002057

PATIENT
  Age: 27 Year
  Sex: Male
  Weight: 76.5 kg

DRUGS (3)
  1. OLANZAPINE LONG-ACTING IM [Suspect]
     Indication: SCHIZOPHRENIA
     Dosage: 300 MG, EVERY 2 WEEKS
     Route: 030
     Dates: start: 20120703
  2. ABILIFY [Concomitant]
     Indication: PSYCHOTIC DISORDER
     Dosage: UNK
     Dates: start: 20120821
  3. PAROXETIN                          /00830801/ [Concomitant]
     Indication: DEPRESSION
     Dosage: UNK
     Dates: start: 20120703

REACTIONS (9)
  - Asthenia [Recovered/Resolved]
  - Dizziness [Recovered/Resolved]
  - Dysarthria [Recovered/Resolved]
  - Loss of consciousness [Recovered/Resolved]
  - Hallucination [Recovered/Resolved]
  - Confusional state [Recovered/Resolved]
  - Delirium [Recovered/Resolved]
  - Coma [Recovered/Resolved]
  - Sedation [Recovered/Resolved]
